FAERS Safety Report 22066980 (Version 1)
Quarter: 2023Q1

REPORT INFORMATION
  Report Type: Spontaneous
  Country: US (occurrence: US)
  Receive Date: 20230306
  Receipt Date: 20230306
  Transmission Date: 20230418
  Serious: No
  Sender: FDA-Public Use
  Company Number: US-BEH-2023155984

PATIENT
  Sex: Female

DRUGS (10)
  1. HIZENTRA [Suspect]
     Active Substance: HUMAN IMMUNOGLOBULIN G
     Indication: Developmental delay
     Dosage: 3 GRAM, QOW
     Route: 058
     Dates: start: 20220809
  2. MELATONIN [Concomitant]
     Active Substance: MELATONIN
  3. AQUAPHOR [Concomitant]
     Active Substance: PETROLATUM
  4. EUCRISA [Concomitant]
     Active Substance: CRISABOROLE
  5. FLOVENT HFA [Concomitant]
     Active Substance: FLUTICASONE PROPIONATE
  6. MUPIROCIN [Concomitant]
     Active Substance: MUPIROCIN
  7. PREDNISOLONE [Concomitant]
     Active Substance: PREDNISOLONE
  8. TRIAMCINOLONE [Concomitant]
     Active Substance: TRIAMCINOLONE
  9. TYLENOL [Concomitant]
     Active Substance: ACETAMINOPHEN
  10. ZYRTEC [Concomitant]
     Active Substance: CETIRIZINE HYDROCHLORIDE

REACTIONS (4)
  - Infusion site erythema [Not Recovered/Not Resolved]
  - Fatigue [Not Recovered/Not Resolved]
  - No adverse event [Unknown]
  - Off label use [Unknown]
